FAERS Safety Report 10981612 (Version 1)
Quarter: 2015Q1

REPORT INFORMATION
  Report Type: Spontaneous
  Country: US (occurrence: None)
  Receive Date: 20150227
  Receipt Date: 20150227
  Transmission Date: 20150721
  Serious: Yes (Life-Threatening, Other)
  Sender: FDA-Public Use
  Company Number: LMI-2014-00201

PATIENT
  Age: 67 Year
  Sex: Male
  Weight: 113 kg

DRUGS (1)
  1. DEFINITY [Suspect]
     Active Substance: PERFLUTREN
     Indication: ECHOCARDIOGRAM
     Dosage: 1.5 ML DEFINITY DILUTED IN 8.5 ML NORMAL SALINE) (6 ML,1 IN 1 D)
     Route: 040
     Dates: start: 20140501, end: 20140501

REACTIONS (7)
  - Hypertension [None]
  - Electrocardiogram T wave inversion [None]
  - Cyanosis [None]
  - Oxygen saturation decreased [None]
  - Back pain [None]
  - Hypersensitivity [None]
  - Erythema [None]

NARRATIVE: CASE EVENT DATE: 20140501
